FAERS Safety Report 23429524 (Version 1)
Quarter: 2024Q1

REPORT INFORMATION
  Report Type: Spontaneous
  Country: US (occurrence: None)
  Receive Date: 20240122
  Receipt Date: 20240122
  Transmission Date: 20240409
  Serious: Yes (Hospitalization, Other)
  Sender: FDA-Public Use
  Company Number: None

PATIENT
  Age: 72 Year
  Sex: Female

DRUGS (3)
  1. ASCLERA [Suspect]
     Active Substance: POLIDOCANOL
     Indication: Varicose vein
     Dates: start: 20230613, end: 20230629
  2. ASCLERA [Suspect]
     Active Substance: POLIDOCANOL
     Indication: Sclerotherapy
  3. SYNTHROID [Concomitant]
     Active Substance: LEVOTHYROXINE SODIUM

REACTIONS (7)
  - Rash [None]
  - Rash macular [None]
  - Genital rash [None]
  - Pruritus [None]
  - Skin discolouration [None]
  - Vascular procedure complication [None]
  - Adverse drug reaction [None]

NARRATIVE: CASE EVENT DATE: 20230613
